FAERS Safety Report 22021755 (Version 1)
Quarter: 2023Q1

REPORT INFORMATION
  Report Type: Spontaneous
  Country: US (occurrence: None)
  Receive Date: 20230219
  Receipt Date: 20230219
  Transmission Date: 20230418
  Serious: Yes (unspecified)
  Sender: FDA-Public Use
  Company Number: None

PATIENT
  Age: 67 Year
  Sex: Female
  Weight: 49.5 kg

DRUGS (7)
  1. CLINDAMYCIN HYDROCHLORIDE [Suspect]
     Active Substance: CLINDAMYCIN HYDROCHLORIDE
     Indication: Oral surgery
     Dosage: 1 CAPSULE EVERY 6 HOURS ORAL
     Route: 048
     Dates: start: 20230214, end: 20230219
  2. CLINDAMYCIN HYDROCHLORIDE [Suspect]
     Active Substance: CLINDAMYCIN HYDROCHLORIDE
     Indication: Infection prophylaxis
  3. CLINDAMYCIN HYDROCHLORIDE [Suspect]
     Active Substance: CLINDAMYCIN HYDROCHLORIDE
     Indication: Bone graft
  4. E-CITALOPRAM [Concomitant]
  5. ADDERALL [Concomitant]
     Active Substance: AMPHETAMINE ASPARTATE\AMPHETAMINE SULFATE\DEXTROAMPHETAMINE SACCHARATE\DEXTROAMPHETAMINE SULFATE
  6. BUPROPION [Concomitant]
     Active Substance: BUPROPION
  7. OMEPRAZOLE [Concomitant]
     Active Substance: OMEPRAZOLE

REACTIONS (9)
  - Frequent bowel movements [None]
  - Dizziness [None]
  - Gastrooesophageal reflux disease [None]
  - Disturbance in attention [None]
  - Dizziness [None]
  - Head discomfort [None]
  - Vertigo positional [None]
  - Vomiting [None]
  - Tinnitus [None]

NARRATIVE: CASE EVENT DATE: 20230216
